FAERS Safety Report 24377155 (Version 2)
Quarter: 2024Q4

REPORT INFORMATION
  Report Type: Report from Study
  Country: NL (occurrence: NL)
  Receive Date: 20240930
  Receipt Date: 20241002
  Transmission Date: 20250115
  Serious: Yes (Other)
  Sender: ABBVIE
  Company Number: NL-ABBVIE-5653394

PATIENT
  Age: 69 Year
  Sex: Male

DRUGS (8)
  1. CARBIDOPA\LEVODOPA [Suspect]
     Active Substance: CARBIDOPA\LEVODOPA
     Indication: Parkinson^s disease
     Dosage: MD: 11.3ML, CD: 2.9ML/H, ED: 3.0ML,?DURATION: REMAINS AT 16 HOURS
     Route: 050
     Dates: start: 20240410, end: 20240814
  2. CARBIDOPA\LEVODOPA [Suspect]
     Active Substance: CARBIDOPA\LEVODOPA
     Dosage: MD: 11.3ML, CD: 2.9ML/H, ED: 3.0ML,?DURATION: REMAINS AT 16 HOURS
     Route: 050
     Dates: start: 20240814, end: 20240925
  3. CARBIDOPA\LEVODOPA [Suspect]
     Active Substance: CARBIDOPA\LEVODOPA
     Dosage: DURATION: REMAINS AT 16 HOURS
     Route: 050
     Dates: start: 20200803
  4. CARBIDOPA\LEVODOPA [Suspect]
     Active Substance: CARBIDOPA\LEVODOPA
     Dosage: MD 11.3ML CD 3.3ML/H ED 3.0ML,?DURATION: REMAINS AT 16 HOURS
     Route: 050
     Dates: start: 20230929, end: 20230929
  5. CARBIDOPA\LEVODOPA [Suspect]
     Active Substance: CARBIDOPA\LEVODOPA
     Dosage: MD 11.3ML CD 3.1ML/H ED 3.0ML?DURATION: REMAINS AT 16 HOURS
     Route: 050
     Dates: start: 20240220, end: 20240311
  6. CARBIDOPA\LEVODOPA [Suspect]
     Active Substance: CARBIDOPA\LEVODOPA
     Dosage: MD 11.3ML CD 3.1ML/H ED 3.0ML,?DURATION: REMAINS AT 16 HOURS
     Route: 050
     Dates: start: 20231004, end: 20231004
  7. CARBIDOPA\LEVODOPA [Suspect]
     Active Substance: CARBIDOPA\LEVODOPA
     Dosage: MD: 11.3ML, CD: 3.0ML/H, ED: 3.0ML,?DURATION: REMAINS AT 16 HOURS
     Route: 050
     Dates: start: 20240311, end: 20240410
  8. CARBIDOPA\LEVODOPA [Suspect]
     Active Substance: CARBIDOPA\LEVODOPA
     Dosage: MD: 11.3ML, CD: 2.9ML/H, ED: 3.0ML?REMAINS AT 16 HOURS
     Route: 050
     Dates: start: 20240925

REACTIONS (31)
  - Urinary retention [Recovering/Resolving]
  - Freezing phenomenon [Not Recovered/Not Resolved]
  - Mobility decreased [Not Recovered/Not Resolved]
  - Device kink [Recovered/Resolved]
  - Device issue [Recovered/Resolved]
  - Nocturia [Not Recovered/Not Resolved]
  - Dysuria [Not Recovered/Not Resolved]
  - Speech disorder [Not Recovered/Not Resolved]
  - Fall [Not Recovered/Not Resolved]
  - On and off phenomenon [Not Recovered/Not Resolved]
  - Muscular weakness [Recovering/Resolving]
  - Off label use [Recovered/Resolved]
  - Medical device discomfort [Not Recovered/Not Resolved]
  - Device occlusion [Not Recovered/Not Resolved]
  - Abnormal dreams [Not Recovered/Not Resolved]
  - Decreased appetite [Unknown]
  - Reduced facial expression [Not Recovered/Not Resolved]
  - Cystitis [Recovered/Resolved]
  - Device dislocation [Unknown]
  - Muscle rigidity [Recovered/Resolved]
  - Communication disorder [Not Recovered/Not Resolved]
  - Bladder spasm [Not Recovered/Not Resolved]
  - Bradykinesia [Not Recovered/Not Resolved]
  - Asthenia [Not Recovered/Not Resolved]
  - Medical device pain [Not Recovered/Not Resolved]
  - Walking aid user [Not Recovered/Not Resolved]
  - Depressed mood [Not Recovered/Not Resolved]
  - Dyskinesia [Not Recovered/Not Resolved]
  - Mood swings [Not Recovered/Not Resolved]
  - Device issue [Unknown]
  - Poor quality sleep [Recovered/Resolved]

NARRATIVE: CASE EVENT DATE: 20240101
